FAERS Safety Report 4849631-5 (Version None)
Quarter: 2005Q4

REPORT INFORMATION
  Report Type: 
  Country: None (occurrence: None)
  Receive Date: 20051207
  Receipt Date: 20051128
  Transmission Date: 20060501
  Serious: Yes (Death, Hospitalization)
  Sender: FDA-Public Use
  Company Number: 2005-11-1546

PATIENT
  Age: 77 Year
  Sex: Male

DRUGS (4)
  1. CELESTONE [Suspect]
     Indication: BRAIN OEDEMA
     Dosage: ORAL
     Route: 048
  2. CELESTONE [Suspect]
     Indication: PROPHYLAXIS
     Dosage: ORAL
     Route: 048
  3. RADIATION THERAPY [Concomitant]
  4. CHEMOTHEAPY REGIMENS [Concomitant]

REACTIONS (2)
  - PNEUMONIA LEGIONELLA [None]
  - PNEUMONIA PRIMARY ATYPICAL [None]
